FAERS Safety Report 23347981 (Version 1)
Quarter: 2023Q4

REPORT INFORMATION
  Report Type: Spontaneous
  Country: US (occurrence: None)
  Receive Date: 20231228
  Receipt Date: 20231228
  Transmission Date: 20240110
  Serious: Yes (Life-Threatening, Hospitalization, Disabling)
  Sender: FDA-Public Use
  Company Number: None

PATIENT
  Age: 84 Year
  Sex: Female
  Weight: 76.5 kg

DRUGS (11)
  1. AVASTIN [Suspect]
     Active Substance: BEVACIZUMAB
     Indication: Inflammation
     Dosage: OTHER QUANTITY : 1 INFUSION;?OTHER FREQUENCY : Q 2 WEEKS APART;?OTHER ROUTE : INFUSION AT HOSPITAL;?
     Route: 050
     Dates: start: 20230601
  2. Left hip hemi replacement desmopressin [Concomitant]
  3. TYLENOL [Concomitant]
  4. CELEXA [Concomitant]
     Active Substance: CITALOPRAM HYDROBROMIDE
  5. VITAMIN D [Concomitant]
     Active Substance: VITAMIN D NOS
  6. CALCIUM [Concomitant]
     Active Substance: CALCIUM
  7. FISH OIL [Concomitant]
     Active Substance: FISH OIL
  8. GLUCOSAMINE [Concomitant]
     Active Substance: GLUCOSAMINE
  9. VITAMINS [Concomitant]
     Active Substance: VITAMINS
  10. MIRALAX [Concomitant]
     Active Substance: POLYETHYLENE GLYCOL 3350
  11. VERAPAMIL [Concomitant]
     Active Substance: VERAPAMIL HYDROCHLORIDE

REACTIONS (5)
  - Hypophysitis [None]
  - Confusional state [None]
  - Unresponsive to stimuli [None]
  - Cerebral atrophy [None]
  - Diabetes insipidus [None]

NARRATIVE: CASE EVENT DATE: 20231205
